FAERS Safety Report 10011649 (Version 3)
Quarter: 2014Q3

REPORT INFORMATION
  Report Type: Spontaneous
  Country: US (occurrence: US)
  Receive Date: 20140314
  Receipt Date: 20140714
  Transmission Date: 20150326
  Serious: No
  Sender: FDA-Public Use
  Company Number: US-BAYER-2014-037219

PATIENT
  Age: 19 Year
  Sex: Female
  Weight: 98 kg

DRUGS (2)
  1. AMPICILLIN [Concomitant]
     Active Substance: AMPICILLIN
     Dosage: 500 MG, BID
  2. MIRENA [Suspect]
     Active Substance: LEVONORGESTREL
     Indication: CONTRACEPTION
     Dosage: 20 MCG/24HR, CONT
     Route: 015
     Dates: start: 20130625

REACTIONS (4)
  - Drug ineffective [None]
  - Device expulsion [None]
  - Pregnancy with contraceptive device [Recovered/Resolved]
  - Menstruation delayed [None]

NARRATIVE: CASE EVENT DATE: 201306
